FAERS Safety Report 17457459 (Version 1)
Quarter: 2020Q1

REPORT INFORMATION
  Report Type: Report from Study
  Country: BR (occurrence: BR)
  Receive Date: 20200225
  Receipt Date: 20200225
  Transmission Date: 20200409
  Serious: Yes (Hospitalization, Disabling, Other)
  Sender: FDA-Public Use
  Company Number: NVSC2020BR013675

PATIENT
  Age: 57 Year
  Sex: Female
  Weight: 53 kg

DRUGS (7)
  1. DICLOFENAC SODIUM. [Concomitant]
     Active Substance: DICLOFENAC SODIUM
     Indication: INTERVERTEBRAL DISC PROTRUSION
     Dosage: 20 MG, QD
     Route: 048
  2. NPH INSULIN [Concomitant]
     Active Substance: INSULIN BEEF
     Indication: DIABETES MELLITUS
     Dosage: 40 IU BY THE MORNING AND 30 IU BY THE NIGHT, BID
     Route: 058
  3. SIMVASTATIN. [Concomitant]
     Active Substance: SIMVASTATIN
     Indication: BLOOD CHOLESTEROL INCREASED
     Dosage: 20 MG, QD
     Route: 048
  4. AAS [Concomitant]
     Active Substance: ASPIRIN
     Indication: PRODUCT USED FOR UNKNOWN INDICATION
     Route: 065
  5. COSENTYX [Suspect]
     Active Substance: SECUKINUMAB
     Indication: PSORIASIS
     Dosage: 2 AMPOULES ONCE IN EVERY 15 DAYS
     Route: 058
     Dates: start: 201907
  6. COSENTYX [Suspect]
     Active Substance: SECUKINUMAB
     Indication: PSORIATIC ARTHROPATHY
     Dosage: 2 AMPOULES ONCE IN EVERY 15 DAYS
     Route: 065
     Dates: start: 20181128
  7. INSULIN [Concomitant]
     Active Substance: INSULIN NOS
     Indication: DIABETES MELLITUS
     Dosage: 10IU DOSE CHANGES ACCORDING WITH GLYCAEMIA,QD
     Route: 058

REACTIONS (24)
  - Blindness [Unknown]
  - Pruritus [Unknown]
  - Memory impairment [Unknown]
  - Patella fracture [Unknown]
  - Gait inability [Unknown]
  - Inflammation [Unknown]
  - Tendon rupture [Unknown]
  - Malaise [Unknown]
  - Gait disturbance [Not Recovered/Not Resolved]
  - Headache [Unknown]
  - Tuberculosis [Unknown]
  - Fall [Unknown]
  - Psoriasis [Unknown]
  - Myalgia [Unknown]
  - Inappropriate schedule of product administration [Unknown]
  - Deafness [Unknown]
  - Abdominal discomfort [Unknown]
  - Joint injury [Unknown]
  - Skin wound [Unknown]
  - Hypertension [Unknown]
  - Nausea [Unknown]
  - Injection site mass [Unknown]
  - Retinal detachment [Unknown]
  - Hypoacusis [Unknown]

NARRATIVE: CASE EVENT DATE: 20191005
